FAERS Safety Report 10292130 (Version 2)
Quarter: 2014Q3

REPORT INFORMATION
  Report Type: Spontaneous
  Country: US (occurrence: US)
  Receive Date: 20140710
  Receipt Date: 20140710
  Transmission Date: 20150326
  Serious: No
  Sender: FDA-Public Use
  Company Number: US-PURDUE-USA-2013-0107624

PATIENT
  Age: 38 Year
  Sex: Female
  Weight: 45.35 kg

DRUGS (4)
  1. SLAXIN                             /00018302/ [Concomitant]
     Indication: PRODUCT USED FOR UNKNOWN INDICATION
     Dosage: 80 MG, 4 DAILY
     Route: 048
  2. BUTRANS [Suspect]
     Active Substance: BUPRENORPHINE
     Indication: COMPLEX REGIONAL PAIN SYNDROME
     Dosage: 20 MCG/HR, WEEKLY
     Route: 062
     Dates: start: 201301
  3. PERCOCET [Concomitant]
     Active Substance: ACETAMINOPHEN\OXYCODONE HYDROCHLORIDE
     Indication: PRODUCT USED FOR UNKNOWN INDICATION
     Dosage: 10/325 6 PER DAY
     Route: 048
  4. LYRICA [Concomitant]
     Active Substance: PREGABALIN
     Indication: PRODUCT USED FOR UNKNOWN INDICATION
     Dosage: 75 MG, BID
     Route: 048

REACTIONS (4)
  - Nausea [Recovered/Resolved]
  - Drug effect increased [Recovered/Resolved]
  - Vomiting [Recovered/Resolved]
  - Inappropriate schedule of drug administration [Recovered/Resolved]

NARRATIVE: CASE EVENT DATE: 201309
